FAERS Safety Report 25785862 (Version 1)
Quarter: 2025Q3

REPORT INFORMATION
  Report Type: Spontaneous
  Country: JP (occurrence: JP)
  Receive Date: 20250910
  Receipt Date: 20250910
  Transmission Date: 20251021
  Serious: Yes (Death)
  Sender: ROCHE
  Company Number: JP-CHUGAI-2025028643

PATIENT
  Age: 72 Year

DRUGS (1)
  1. VABYSMO [Suspect]
     Active Substance: FARICIMAB-SVOA
     Indication: Diabetic retinal oedema
     Dosage: 120 MILLIGRAM, ONCE/4WEEKS
     Route: 031
     Dates: start: 202507, end: 202507

REACTIONS (1)
  - Death [Fatal]
